FAERS Safety Report 7038228-7 (Version None)
Quarter: 2010Q4

REPORT INFORMATION
  Report Type: 
  Country: None (occurrence: None)
  Receive Date: 20101011
  Receipt Date: 20100111
  Transmission Date: 20110411
  Serious: Yes (Other)
  Sender: FDA-Public Use
  Company Number: US-PFIZER INC-2010004766

PATIENT
  Sex: Female
  Weight: 64.863 kg

DRUGS (5)
  1. GABAPENTIN [Suspect]
     Indication: FIBROMYALGIA
     Dosage: 600 MG, 3X/DAY
     Route: 048
     Dates: end: 20091101
  2. GABAPENTIN [Suspect]
     Indication: SPONDYLOARTHROPATHY
  3. NEURONTIN [Suspect]
     Indication: SPONDYLOARTHROPATHY
     Dosage: 600 MG, 3X/DAY
     Route: 048
     Dates: start: 20091201, end: 20100111
  4. NEURONTIN [Suspect]
     Indication: FIBROMYALGIA
  5. DILAUDID [Concomitant]
     Dosage: UNK

REACTIONS (2)
  - DRUG INEFFECTIVE [None]
  - HYPERSENSITIVITY [None]
